FAERS Safety Report 6208184-X (Version None)
Quarter: 2009Q2

REPORT INFORMATION
  Report Type: 
  Country: None (occurrence: None)
  Receive Date: 20090529
  Receipt Date: 20090520
  Transmission Date: 20091009
  Serious: Yes (Other)
  Sender: FDA-Public Use
  Company Number: PHHY2009JP19719

PATIENT
  Age: 66 Year
  Sex: Male

DRUGS (2)
  1. CYCLOSPORINE [Suspect]
     Indication: APLASTIC ANAEMIA
     Dosage: UNK
     Route: 065
  2. ANTILYMPHOCYTE IMMUNOGLOBULIN (HORSE) [Concomitant]
     Dosage: UNK

REACTIONS (3)
  - RENAL IMPAIRMENT [None]
  - SEPSIS [None]
  - THYMOMA [None]
